FAERS Safety Report 9713968 (Version 2)
Quarter: 2015Q3

REPORT INFORMATION
  Report Type: Spontaneous
  Country: US (occurrence: US)
  Receive Date: 20131126
  Receipt Date: 20150803
  Transmission Date: 20151125
  Serious: No
  Sender: FDA-Public Use
  Company Number: US-GILEAD-2008-0018342

PATIENT
  Age: 67 Year
  Sex: Female
  Weight: 90.72 kg

DRUGS (15)
  1. GLUCOTROL [Concomitant]
     Active Substance: GLIPIZIDE
  2. MIRAPEX [Concomitant]
     Active Substance: PRAMIPEXOLE DIHYDROCHLORIDE
  3. METOPROLOL [Concomitant]
     Active Substance: METOPROLOL
  4. DIGOXIN. [Concomitant]
     Active Substance: DIGOXIN
  5. PRINIVIL [Concomitant]
     Active Substance: LISINOPRIL
  6. LETAIRIS [Suspect]
     Active Substance: AMBRISENTAN
     Indication: PULMONARY ARTERIAL HYPERTENSION
     Route: 048
     Dates: start: 20080722
  7. ISOSORBIDE MN [Concomitant]
     Active Substance: ISOSORBIDE MONONITRATE
  8. TORSEMIDE. [Concomitant]
     Active Substance: TORSEMIDE
  9. SYNTHROID [Concomitant]
     Active Substance: LEVOTHYROXINE SODIUM
  10. HUMULIN N [Concomitant]
     Active Substance: INSULIN HUMAN
  11. RELAFEN [Concomitant]
     Active Substance: NABUMETONE
  12. COUMADIN [Concomitant]
     Active Substance: WARFARIN SODIUM
  13. DILTIAZEM [Concomitant]
     Active Substance: DILTIAZEM
  14. GLUCOPHAGE [Concomitant]
     Active Substance: METFORMIN HYDROCHLORIDE
  15. ZYRTEC [Concomitant]
     Active Substance: CETIRIZINE HYDROCHLORIDE

REACTIONS (3)
  - Dyspnoea [Unknown]
  - Chest discomfort [Unknown]
  - Fluid retention [Unknown]
